FAERS Safety Report 4506917-1 (Version None)
Quarter: 2004Q4

REPORT INFORMATION
  Report Type: 
  Country: None (occurrence: None)
  Receive Date: 20041117
  Receipt Date: 20041105
  Transmission Date: 20050328
  Serious: Yes (Hospitalization)
  Sender: FDA-Public Use
  Company Number: 2004-BP-11499YA

PATIENT
  Age: 69 Year
  Sex: Male

DRUGS (3)
  1. HARNAL (TAMSULOSIN) [Suspect]
     Indication: BENIGN PROSTATIC HYPERPLASIA
     Dosage: 0.4 MG MG
     Route: 048
     Dates: start: 20040204
  2. ZYLORIC [Suspect]
     Dosage: 200 MG
     Route: 048
     Dates: end: 20040926
  3. SEI-HAI-TO [Suspect]
     Dosage: 9 G
     Route: 048
     Dates: start: 20040817, end: 20040907

REACTIONS (1)
  - RHABDOMYOLYSIS [None]
